FAERS Safety Report 9801448 (Version 1)
Quarter: 2014Q1

REPORT INFORMATION
  Report Type: Spontaneous
  Country: US (occurrence: US)
  Receive Date: 20140107
  Receipt Date: 20140107
  Transmission Date: 20141002
  Serious: Yes (Death)
  Sender: FDA-Public Use
  Company Number: US-UCBSA-108007

PATIENT
  Age: 51 Year
  Sex: Female

DRUGS (4)
  1. ALPRAZOLAM [Suspect]
     Dosage: ROUTE: INGESTION + UNKNOWN
  2. OXYCODONE [Suspect]
     Dosage: ROUTE: INGESTION + UNKNOWN
  3. MORPHINE [Suspect]
     Dosage: ROUTE: INGESTION + UNKNOWN
  4. MEPERIDINE [Suspect]
     Dosage: ROUTE: INGESTION + UNKNOWN

REACTIONS (1)
  - Toxicity to various agents [Fatal]
